FAERS Safety Report 11882866 (Version 1)
Quarter: 2015Q4

REPORT INFORMATION
  Report Type: Spontaneous
  Country: None (occurrence: US)
  Receive Date: 20151231
  Receipt Date: 20151231
  Transmission Date: 20160305
  Serious: Yes (Other)
  Sender: FDA-Public Use
  Company Number: US-LNK INTERNATIONAL, INC.-1046039

PATIENT
  Sex: Female

DRUGS (1)
  1. NIGHTTIME SLEEP AID [Suspect]
     Active Substance: DIPHENHYDRAMINE HYDROCHLORIDE\DOXYLAMINE SUCCINATE

REACTIONS (1)
  - Restlessness [None]
